FAERS Safety Report 5978456-2 (Version None)
Quarter: 2008Q4

REPORT INFORMATION
  Report Type: 
  Country: None (occurrence: None)
  Receive Date: 20081204
  Receipt Date: 20081127
  Transmission Date: 20090506
  Serious: Yes (Death)
  Sender: FDA-Public Use
  Company Number: CA-ROCHE-597946

PATIENT
  Sex: Male
  Weight: 65.5 kg

DRUGS (8)
  1. PEGASYS [Suspect]
     Route: 058
     Dates: start: 20081017, end: 20081101
  2. COPEGUS [Suspect]
     Route: 048
     Dates: start: 20081017, end: 20081101
  3. CLONAZEPAM [Suspect]
     Indication: DRUG USE FOR UNKNOWN INDICATION
     Route: 048
  4. METHADONE HCL [Concomitant]
     Route: 048
  5. IRON [Concomitant]
     Dosage: IRON SUPPLEMENT
     Route: 048
  6. VITAMIN B-12 [Concomitant]
     Dosage: DOSAGE REGIMEN: MONTHLY
     Route: 030
  7. CELEXA [Concomitant]
     Indication: DEPRESSION
     Route: 048
  8. COCAINE [Concomitant]

REACTIONS (1)
  - DEATH [None]
